FAERS Safety Report 13958356 (Version 3)
Quarter: 2017Q4

REPORT INFORMATION
  Report Type: Spontaneous
  Country: US (occurrence: US)
  Receive Date: 20170912
  Receipt Date: 20171030
  Transmission Date: 20180320
  Serious: Yes (Other)
  Sender: FDA-Public Use
  Company Number: US-PFIZER INC-2016454125

PATIENT
  Age: 68 Year
  Sex: Female
  Weight: 76.64 kg

DRUGS (4)
  1. ZANTAC [Concomitant]
     Active Substance: RANITIDINE HYDROCHLORIDE
     Indication: ABDOMINAL PAIN UPPER
     Dosage: UNK
  2. LYRICA [Suspect]
     Active Substance: PREGABALIN
     Indication: NEURALGIA
     Dosage: 75 MG, 2X/DAY (75MG CAPSULE MORNING AND EVENING)
     Route: 048
     Dates: start: 2013, end: 201708
  3. DETROL LA [Concomitant]
     Active Substance: TOLTERODINE TARTRATE
     Indication: STRESS URINARY INCONTINENCE
     Dosage: UNK
  4. METFORMIN [Concomitant]
     Active Substance: METFORMIN HYDROCHLORIDE
     Indication: DIABETES MELLITUS
     Dosage: UNK

REACTIONS (5)
  - Drug effect incomplete [Unknown]
  - Gait disturbance [Unknown]
  - Drug dependence [Unknown]
  - Pain [Not Recovered/Not Resolved]
  - Condition aggravated [Not Recovered/Not Resolved]

NARRATIVE: CASE EVENT DATE: 201708
